FAERS Safety Report 7343868-1 (Version None)
Quarter: 2011Q1

REPORT INFORMATION
  Report Type: 
  Country: None (occurrence: None)
  Receive Date: 20110310
  Receipt Date: 20110225
  Transmission Date: 20110831
  Serious: Yes (Other)
  Sender: FDA-Public Use
  Company Number: PHHY2011GB15437

PATIENT
  Sex: Male
  Weight: 112 kg

DRUGS (15)
  1. TAMSULOSIN [Suspect]
     Indication: BENIGN PROSTATIC HYPERPLASIA
     Dosage: 400 UG, UNK
     Route: 048
     Dates: start: 20100915, end: 20110124
  2. MOVIPREP [Concomitant]
     Route: 048
  3. PRAVASTATIN [Concomitant]
     Dosage: 40 MG, QD
     Route: 048
  4. ATENOLOL [Concomitant]
     Dosage: 50 MG, QD
     Route: 048
  5. CLENIL [Concomitant]
     Dosage: 200 UG, BID
  6. FUROSEMIDE [Concomitant]
     Dosage: 40 MG, BID
     Route: 048
  7. ALLOPURINOL [Concomitant]
     Dosage: 100 MG, BID
     Route: 048
  8. FERROUS FUMARATE [Concomitant]
     Dosage: 210 MG, TID
     Route: 048
  9. LANSOPRAZOLE [Concomitant]
     Dosage: 15 MG, QD
     Route: 048
  10. BECLOMETHASONE DIPROPIONATE [Concomitant]
     Dosage: 200 UG, BID
     Route: 045
  11. ISPAGHULA HUSK [Concomitant]
     Dosage: 1 DF, BID
     Route: 048
  12. TIOTROPIUM BROMIDE [Concomitant]
     Dosage: 18 UG, QD
  13. LORATADINE [Concomitant]
     Dosage: 10 MG, QD
     Route: 048
  14. SALBUTAMOL [Concomitant]
     Dosage: 200 UG, QID
  15. LACTULOSE [Concomitant]
     Dosage: 10 ML, BID
     Route: 048

REACTIONS (4)
  - VERTIGO [None]
  - PRURITUS [None]
  - NOCTURNAL DYSPNOEA [None]
  - MIGRAINE [None]
